FAERS Safety Report 19483565 (Version 2)
Quarter: 2021Q3

REPORT INFORMATION
  Report Type: Spontaneous
  Country: US (occurrence: US)
  Receive Date: 20210701
  Receipt Date: 20210811
  Transmission Date: 20211014
  Serious: Yes (Other)
  Sender: FDA-Public Use
  Company Number: US-BIOMARINAP-US-2021-137330

PATIENT
  Age: 19 Year
  Sex: Male
  Weight: 62.4 kg

DRUGS (1)
  1. PALYNZIQ [Suspect]
     Active Substance: PEGVALIASE-PQPZ
     Indication: PHENYLKETONURIA
     Dosage: 2.5 MILLIGRAM, QW
     Route: 058
     Dates: start: 20210623

REACTIONS (5)
  - Fatigue [Unknown]
  - Heart rate increased [Unknown]
  - Dizziness [Unknown]
  - Anaphylactic reaction [Unknown]
  - Tremor [Unknown]
